FAERS Safety Report 7237275-X (Version None)
Quarter: 2011Q1

REPORT INFORMATION
  Report Type: 
  Country: None (occurrence: None)
  Receive Date: 20110112
  Receipt Date: 20101228
  Transmission Date: 20110831
  Serious: Yes (Hospitalization)
  Sender: FDA-Public Use
  Company Number: AUR-APL-2010-00023

PATIENT
  Age: 57 Year
  Sex: Male

DRUGS (10)
  1. METFORMIN HCL [Suspect]
     Indication: DIABETES MELLITUS
     Dosage: 0.5-1G-BID
     Dates: start: 20040101
  2. RAMIPRIL [Concomitant]
  3. CLOPIDOGREL [Concomitant]
  4. ASPIRIN [Concomitant]
  5. METOPROLOL TARTRATE [Concomitant]
  6. ISOSORBIDE MONONITRATE [Concomitant]
  7. ATORVASTATIN [Concomitant]
  8. METFORMIN HCL [Suspect]
     Indication: DIABETES MELLITUS
     Dates: start: 19990101, end: 20040101
  9. GLIMEPIRIDE [Concomitant]
  10. LANSOPRAZOLE [Concomitant]

REACTIONS (9)
  - PAIN IN EXTREMITY [None]
  - MUSCLE SPASMS [None]
  - MALAISE [None]
  - HYPOKALAEMIA [None]
  - DIARRHOEA [None]
  - PARAESTHESIA [None]
  - HYPOMAGNESAEMIA [None]
  - HYPOCALCAEMIA [None]
  - BLOOD GLUCOSE INCREASED [None]
